FAERS Safety Report 25675955 (Version 2)
Quarter: 2025Q3

REPORT INFORMATION
  Report Type: Report from Study
  Country: US (occurrence: US)
  Receive Date: 20250813
  Receipt Date: 20250819
  Transmission Date: 20251021
  Serious: Yes (Disabling, Other)
  Sender: NOVARTIS
  Company Number: US-002147023-NVSC2025US127198

PATIENT
  Age: 67 Year
  Sex: Female

DRUGS (1)
  1. KISQALI [Suspect]
     Active Substance: RIBOCICLIB SUCCINATE
     Indication: Breast cancer metastatic
     Dosage: 600 MG, QD
     Route: 048
     Dates: start: 20250701, end: 20250713

REACTIONS (5)
  - Stevens-Johnson syndrome [Unknown]
  - Rash [Not Recovered/Not Resolved]
  - Skin exfoliation [Recovering/Resolving]
  - Rash macular [Unknown]
  - Rash vesicular [Unknown]

NARRATIVE: CASE EVENT DATE: 20250712
